FAERS Safety Report 7089297-X (Version None)
Quarter: 2010Q4

REPORT INFORMATION
  Report Type: 
  Country: None (occurrence: None)
  Receive Date: 20101108
  Receipt Date: 20101101
  Transmission Date: 20110411
  Serious: Yes (Other)
  Sender: FDA-Public Use
  Company Number: US-PFIZER INC-2010140111

PATIENT
  Sex: Female
  Weight: 53.515 kg

DRUGS (6)
  1. CELEBREX [Suspect]
     Dosage: UNK
  2. PREMARIN [Suspect]
     Dosage: 0.3 MG, DAILY
  3. MOBIC [Suspect]
     Dosage: UNK
  4. DARIFENACIN [Suspect]
     Dosage: UNK
  5. VAGIFEM [Suspect]
     Dosage: UNK
     Dates: start: 20100827
  6. ACETAMINOPHEN [Suspect]
     Dosage: UNK

REACTIONS (7)
  - BLADDER DISORDER [None]
  - BREAST TENDERNESS [None]
  - CONSTIPATION [None]
  - KNEE ARTHROPLASTY [None]
  - POST PROCEDURAL DISCOMFORT [None]
  - SURGERY [None]
  - URINARY RETENTION [None]
